FAERS Safety Report 12163393 (Version 1)
Quarter: 2016Q1

REPORT INFORMATION
  Report Type: Spontaneous
  Country: US (occurrence: US)
  Receive Date: 20160309
  Receipt Date: 20160309
  Transmission Date: 20160526
  Serious: No
  Sender: FDA-Public Use
  Company Number: US-ROCHE-1602972

PATIENT
  Sex: Female

DRUGS (12)
  1. METFORMIN [Concomitant]
     Active Substance: METFORMIN HYDROCHLORIDE
  2. CORTIAZEM [Concomitant]
  3. ENALAPRIL [Concomitant]
     Active Substance: ENALAPRIL
  4. PREDNISONE. [Concomitant]
     Active Substance: PREDNISONE
  5. PRANDIN [Concomitant]
     Active Substance: REPAGLINIDE
  6. HYDRALAZINE [Concomitant]
     Active Substance: HYDRALAZINE HYDROCHLORIDE
  7. DECADRON [Concomitant]
     Active Substance: DEXAMETHASONE
  8. XOLAIR [Suspect]
     Active Substance: OMALIZUMAB
     Route: 058
     Dates: start: 20150624
  9. XOLAIR [Suspect]
     Active Substance: OMALIZUMAB
     Indication: PRODUCT USED FOR UNKNOWN INDICATION
     Route: 058
     Dates: start: 201409
  10. CYPROHEPTADINE. [Concomitant]
     Active Substance: CYPROHEPTADINE
  11. NEPHRON (UNITED STATES) [Concomitant]
  12. LEVOXYL [Concomitant]
     Active Substance: LEVOTHYROXINE SODIUM

REACTIONS (2)
  - Urticaria [Unknown]
  - Drug dose omission [Unknown]
